FAERS Safety Report 10425270 (Version 1)
Quarter: 2014Q3

REPORT INFORMATION
  Report Type: Spontaneous
  Country: US (occurrence: None)
  Receive Date: 20140722
  Receipt Date: 20140722
  Transmission Date: 20150326
  Serious: No
  Sender: FDA-Public Use
  Company Number: AEGR000480

PATIENT
  Age: 74 Year
  Sex: Female
  Weight: 70.7 kg

DRUGS (7)
  1. IRBESARTAN. [Concomitant]
     Active Substance: IRBESARTAN
  2. LEVOTHYROXINE [Concomitant]
     Active Substance: LEVOTHYROXINE
  3. BYSTOLIC [Concomitant]
     Active Substance: NEBIVOLOL HYDROCHLORIDE
  4. JUXTAPID [Suspect]
     Active Substance: LOMITAPIDE MESYLATE
     Indication: TYPE IIA HYPERLIPIDAEMIA
     Route: 048
     Dates: start: 20140418
  5. LIVALO (PITAVASTATIN CALCIUM) [Concomitant]
  6. ZETIA [Concomitant]
     Active Substance: EZETIMIBE
  7. PLAVIX (CLIOIDOGREL BISULFATE) [Concomitant]

REACTIONS (1)
  - Weight decreased [None]

NARRATIVE: CASE EVENT DATE: 20140418
